FAERS Safety Report 10017076 (Version 2)
Quarter: 2014Q2

REPORT INFORMATION
  Report Type: Spontaneous
  Country: US (occurrence: US)
  Receive Date: 20140318
  Receipt Date: 20140507
  Transmission Date: 20141212
  Serious: Yes (Hospitalization)
  Sender: FDA-Public Use
  Company Number: US-BIOGENIDEC-2014BI022545

PATIENT
  Age: 77 Year
  Sex: Female

DRUGS (15)
  1. TECFIDERA [Suspect]
     Indication: MULTIPLE SCLEROSIS
     Route: 048
     Dates: start: 201401
  2. ALPHAGAN P [Concomitant]
  3. BETAGAN [Concomitant]
  4. DIOVAN [Concomitant]
  5. FLONASE [Concomitant]
  6. JANUVIA [Concomitant]
  7. KLOR-CON 10 [Concomitant]
  8. LEXAPRO [Concomitant]
  9. MODAFINIL [Concomitant]
  10. NEURONTIN [Concomitant]
  11. PREMPO [Concomitant]
  12. SYNTHROID [Concomitant]
  13. ULTRAM [Concomitant]
  14. VOLTAREN XR [Concomitant]
  15. XANAX [Concomitant]

REACTIONS (2)
  - Spinal column stenosis [Recovered/Resolved]
  - Muscular weakness [Not Recovered/Not Resolved]
